FAERS Safety Report 15981520 (Version 1)
Quarter: 2019Q1

REPORT INFORMATION
  Report Type: Spontaneous
  Country: CN (occurrence: CN)
  Receive Date: 20190219
  Receipt Date: 20190219
  Transmission Date: 20190418
  Serious: Yes (Hospitalization)
  Sender: FDA-Public Use
  Company Number: CN-JNJFOC-20190219945

PATIENT
  Age: 11 Year
  Sex: Male
  Weight: 98 kg

DRUGS (18)
  1. DIVALPROEX SODIUM. [Concomitant]
     Active Substance: DIVALPROEX SODIUM
     Indication: ATTENTION DEFICIT/HYPERACTIVITY DISORDER
     Route: 048
     Dates: start: 20181120
  2. TOPAMAX [Suspect]
     Active Substance: TOPIRAMATE
     Indication: MIGRAINE
     Dosage: 50 MG AT NOON, 50 MG BEFORE SLEEP
     Route: 048
     Dates: start: 20181129, end: 20181210
  3. TOPAMAX [Suspect]
     Active Substance: TOPIRAMATE
     Indication: ATTENTION DEFICIT/HYPERACTIVITY DISORDER
     Route: 048
     Dates: start: 20181210
  4. DIVALPROEX SODIUM. [Concomitant]
     Active Substance: DIVALPROEX SODIUM
     Indication: EMOTIONAL DISORDER OF CHILDHOOD
     Dosage: 0.5 G AT NOON AND 0.25 G BEFORE SLEEP
     Route: 048
     Dates: start: 20181203, end: 20181225
  5. TOPAMAX [Suspect]
     Active Substance: TOPIRAMATE
     Indication: EMOTIONAL DISORDER OF CHILDHOOD
     Route: 048
     Dates: start: 20181212, end: 20181217
  6. TOPAMAX [Suspect]
     Active Substance: TOPIRAMATE
     Indication: ATTENTION DEFICIT/HYPERACTIVITY DISORDER
     Dosage: 75 MG ONCE A DAY (AT NOON) AND 50 MG PER ORAL BEFORE SLEEP
     Route: 048
     Dates: start: 20181120
  7. TOPAMAX [Suspect]
     Active Substance: TOPIRAMATE
     Indication: EMOTIONAL DISORDER OF CHILDHOOD
     Dosage: 75 MG ONCE A DAY (AT NOON) AND 50 MG PER ORAL BEFORE SLEEP
     Route: 048
     Dates: start: 20181120
  8. TOPAMAX [Suspect]
     Active Substance: TOPIRAMATE
     Indication: ATTENTION DEFICIT/HYPERACTIVITY DISORDER
     Dosage: 50 MG AT NOON, 50 MG BEFORE SLEEP
     Route: 048
     Dates: start: 20181129, end: 20181210
  9. TOPAMAX [Suspect]
     Active Substance: TOPIRAMATE
     Indication: EMOTIONAL DISORDER OF CHILDHOOD
     Dosage: 50 MG AT NOON, 50 MG BEFORE SLEEP
     Route: 048
     Dates: start: 20181129, end: 20181210
  10. DIVALPROEX SODIUM. [Concomitant]
     Active Substance: DIVALPROEX SODIUM
     Indication: MIGRAINE
     Route: 048
     Dates: start: 20181120
  11. TOPAMAX [Suspect]
     Active Substance: TOPIRAMATE
     Indication: MIGRAINE
     Dosage: 75 MG ONCE A DAY (AT NOON) AND 50 MG PER ORAL BEFORE SLEEP
     Route: 048
     Dates: start: 20181120
  12. TOPAMAX [Suspect]
     Active Substance: TOPIRAMATE
     Indication: MIGRAINE
     Route: 048
     Dates: start: 20181210
  13. TOPAMAX [Suspect]
     Active Substance: TOPIRAMATE
     Indication: EMOTIONAL DISORDER OF CHILDHOOD
     Route: 048
     Dates: start: 20181210
  14. TOPAMAX [Suspect]
     Active Substance: TOPIRAMATE
     Indication: MIGRAINE
     Route: 048
     Dates: start: 20181212, end: 20181217
  15. DIVALPROEX SODIUM. [Concomitant]
     Active Substance: DIVALPROEX SODIUM
     Indication: EMOTIONAL DISORDER OF CHILDHOOD
     Route: 048
     Dates: start: 20181120
  16. DIVALPROEX SODIUM. [Concomitant]
     Active Substance: DIVALPROEX SODIUM
     Indication: MIGRAINE
     Dosage: 0.5 G AT NOON AND 0.25 G BEFORE SLEEP
     Route: 048
     Dates: start: 20181203, end: 20181225
  17. TOPAMAX [Suspect]
     Active Substance: TOPIRAMATE
     Indication: ATTENTION DEFICIT/HYPERACTIVITY DISORDER
     Route: 048
     Dates: start: 20181212, end: 20181217
  18. DIVALPROEX SODIUM. [Concomitant]
     Active Substance: DIVALPROEX SODIUM
     Indication: ATTENTION DEFICIT/HYPERACTIVITY DISORDER
     Dosage: 0.5 G AT NOON AND 0.25 G BEFORE SLEEP
     Route: 048
     Dates: start: 20181203, end: 20181225

REACTIONS (1)
  - Headache [Recovering/Resolving]

NARRATIVE: CASE EVENT DATE: 20181210
